FAERS Safety Report 8086199-7 (Version None)
Quarter: 2012Q1

REPORT INFORMATION
  Report Type: 
  Country: None (occurrence: None)
  Receive Date: 20120128
  Receipt Date: 20110426
  Transmission Date: 20120608
  Serious: No
  Sender: FDA-Public Use
  Company Number: US-ABBOTT-11P-163-0721779-00

PATIENT
  Age: 73 Year
  Sex: Female

DRUGS (11)
  1. HUMIRA [Suspect]
     Indication: RHEUMATOID ARTHRITIS
     Dates: start: 20110101
  2. HUMIRA [Suspect]
     Indication: RHEUMATOID ARTHRITIS
  3. COUMADIN [Concomitant]
     Indication: ATRIAL FIBRILLATION
     Dosage: 5MG DAILY FOR 6 DAYS THEN 7.5 ON 7TH DAY-VARIES WITH LAB RESULTS
  4. VITAMIN TAB [Concomitant]
     Indication: PRODUCT USED FOR UNKNOWN INDICATION
  5. DIOVAN HCT [Concomitant]
     Indication: ATRIAL FIBRILLATION
     Dosage: 80/12.5MG DAILY
  6. LEVOTHYROXINE SODIUM [Concomitant]
     Indication: BLOOD PARATHYROID HORMONE INCREASED
  7. FOLIC ACID/B6/B12 [Concomitant]
     Indication: ALOPECIA
  8. ASMANEX TWISTHALER [Concomitant]
     Indication: HYPERSENSITIVITY
     Dosage: AT NIGHT
     Route: 055
  9. METOPROLOL TARTRATE [Concomitant]
     Indication: ATRIAL FIBRILLATION
  10. FOLIC ACID/B6/B12 [Concomitant]
     Indication: GLOSSODYNIA
  11. METHOTREXATE [Concomitant]
     Indication: PRODUCT USED FOR UNKNOWN INDICATION
     Dosage: 0.6 MG WEEKLY
     Route: 050
     Dates: start: 20080101

REACTIONS (5)
  - INJECTION SITE PRURITUS [None]
  - INJECTION SITE NODULE [None]
  - INJECTION SITE LACERATION [None]
  - INJECTION SITE PAIN [None]
  - INJECTION SITE ERYTHEMA [None]
